FAERS Safety Report 5795932-6 (Version None)
Quarter: 2008Q3

REPORT INFORMATION
  Report Type: 
  Country: None (occurrence: None)
  Receive Date: 20080701
  Receipt Date: 20080630
  Transmission Date: 20090109
  Serious: Yes (Hospitalization, Disabling)
  Sender: FDA-Public Use
  Company Number: US-WYE-H03848808

PATIENT
  Sex: Female
  Weight: 77.18 kg

DRUGS (2)
  1. ADVIL [Suspect]
     Indication: HEADACHE
     Dosage: 400-600 MGS THREE TIMES DAILY
     Route: 048
  2. ADVIL [Suspect]
     Indication: ARTHRALGIA

REACTIONS (3)
  - CHEST PAIN [None]
  - DYSPNOEA [None]
  - OVERDOSE [None]
